FAERS Safety Report 18933624 (Version 2)
Quarter: 2021Q1

REPORT INFORMATION
  Report Type: Spontaneous
  Country: US (occurrence: US)
  Receive Date: 20210224
  Receipt Date: 20210226
  Transmission Date: 20210420
  Serious: Yes (Hospitalization, Other)
  Sender: FDA-Public Use
  Company Number: US-TORRENT-00010720

PATIENT
  Age: 48 Year
  Sex: Female
  Weight: 68 kg

DRUGS (1)
  1. VENLAFAXINE [Suspect]
     Active Substance: VENLAFAXINE HYDROCHLORIDE
     Indication: MAJOR DEPRESSION
     Dosage: TABLET
     Route: 048

REACTIONS (4)
  - Drug withdrawal syndrome [Unknown]
  - Hypomania [Recovered/Resolved]
  - Therapy cessation [Unknown]
  - Bipolar disorder [Recovered/Resolved]
